FAERS Safety Report 14833798 (Version 1)
Quarter: 2018Q2

REPORT INFORMATION
  Report Type: Spontaneous
  Country: US (occurrence: US)
  Receive Date: 20180501
  Receipt Date: 20180501
  Transmission Date: 20180711
  Serious: No
  Sender: FDA-Public Use
  Company Number: US-ROCHE-2008991

PATIENT
  Sex: Female
  Weight: 77.18 kg

DRUGS (1)
  1. AVASTIN [Suspect]
     Active Substance: BEVACIZUMAB
     Indication: OVARIAN CANCER STAGE I
     Dosage: PART OF COMBINATION CHEMO WITH 2 OTHER MEDICATIONS ;ONGOING: NO
     Route: 042
     Dates: start: 201605, end: 201704

REACTIONS (1)
  - Tumour marker increased [Unknown]
